FAERS Safety Report 14282774 (Version 1)
Quarter: 2017Q4

REPORT INFORMATION
  Report Type: Spontaneous
  Country: US (occurrence: US)
  Receive Date: 20171213
  Receipt Date: 20171213
  Transmission Date: 20180321
  Serious: Yes (Other)
  Sender: FDA-Public Use
  Company Number: US-AMGEN-USASP2017182047

PATIENT
  Age: 73 Year
  Sex: Female

DRUGS (1)
  1. PROLIA [Suspect]
     Active Substance: DENOSUMAB
     Indication: OSTEOPOROSIS POSTMENOPAUSAL
     Dosage: 60 MG, Q6MO
     Route: 065

REACTIONS (7)
  - Spinal fracture [Not Recovered/Not Resolved]
  - Gastrointestinal disorder [Unknown]
  - Body height decreased [Not Recovered/Not Resolved]
  - Orthosis user [Not Recovered/Not Resolved]
  - Compression fracture [Unknown]
  - Drug dose omission [Unknown]
  - Spinal deformity [Not Recovered/Not Resolved]

NARRATIVE: CASE EVENT DATE: 2017
